FAERS Safety Report 7374932-9 (Version None)
Quarter: 2011Q1

REPORT INFORMATION
  Report Type: 
  Country: None (occurrence: None)
  Receive Date: 20110325
  Receipt Date: 20110310
  Transmission Date: 20110831
  Serious: Yes (Other)
  Sender: FDA-Public Use
  Company Number: PHHY2011CA20131

PATIENT

DRUGS (1)
  1. ALISKIREN [Suspect]

REACTIONS (1)
  - ALBUMIN URINE PRESENT [None]
